FAERS Safety Report 18680839 (Version 1)
Quarter: 2020Q4

REPORT INFORMATION
  Report Type: Report from Study
  Country: US (occurrence: US)
  Receive Date: 20201230
  Receipt Date: 20201230
  Transmission Date: 20210114
  Serious: Yes (Hospitalization)
  Sender: FDA-Public Use
  Company Number: US-ROCHE-2735788

PATIENT
  Age: 59 Year
  Sex: Male
  Weight: 94.4 kg

DRUGS (25)
  1. DOXORUBICIN [Suspect]
     Active Substance: DOXORUBICIN
     Indication: B-CELL LYMPHOMA
     Dosage: ON 02/NOV/2020, THE PATIENT RECEIVED MOST RECENT DOSE 109.6 MG PRIOR TO AE.
     Route: 042
     Dates: start: 20201102
  2. SUBLIMAZE [Concomitant]
     Active Substance: FENTANYL CITRATE
     Route: 058
     Dates: start: 20201028, end: 20201028
  3. SODIUM CHLORIDE. [Concomitant]
     Active Substance: SODIUM CHLORIDE
     Route: 042
     Dates: start: 20201102, end: 20201102
  4. BENADRYL [Concomitant]
     Active Substance: DIPHENHYDRAMINE HYDROCHLORIDE
     Route: 048
     Dates: start: 20201103, end: 20201103
  5. TYLENOL [Concomitant]
     Active Substance: ACETAMINOPHEN
     Route: 042
     Dates: start: 20201102, end: 20201102
  6. OMNIPAQUE [Concomitant]
     Active Substance: IOHEXOL
     Route: 065
     Dates: start: 20201023, end: 20201023
  7. SODIUM CHLORIDE. [Concomitant]
     Active Substance: SODIUM CHLORIDE
     Route: 042
     Dates: start: 20201103, end: 20201103
  8. BENADRYL [Concomitant]
     Active Substance: DIPHENHYDRAMINE HYDROCHLORIDE
     Route: 048
     Dates: start: 20201102, end: 20201102
  9. MOSUNETUZUMAB. [Suspect]
     Active Substance: MOSUNETUZUMAB
     Indication: B-CELL LYMPHOMA
     Dosage: ON 02/NOV/2020, THE PATIENT RECEIVED MOST RECENT DOSE 30 MG OF PRIOR TO AE.?ON 14/DEC/2020, PATIENT
     Route: 042
     Dates: start: 20201102
  10. LIPITOR [Concomitant]
     Active Substance: ATORVASTATIN CALCIUM
     Route: 048
     Dates: start: 20201020
  11. MIDAZOLAM. [Concomitant]
     Active Substance: MIDAZOLAM
     Route: 065
     Dates: start: 20201028, end: 20201028
  12. POLATUZUMAB VEDOTIN. [Suspect]
     Active Substance: POLATUZUMAB VEDOTIN
     Indication: B-CELL LYMPHOMA
     Dosage: ON 02/NOV/2020, THE PATIENT RECEIVED MOST RECENT DOSE 174 MG PRIOR TO AE.?ON 14/DEC/2020, PATIENT RE
     Route: 042
     Dates: start: 20201102
  13. PREDNISONE. [Suspect]
     Active Substance: PREDNISONE
     Indication: B-CELL LYMPHOMA
     Dosage: ON 02/NOV/2020, THE PATIENT RECEIVED MOST RECENT DOSE 100 MG PRIOR TO AE.
     Route: 048
     Dates: start: 20201102
  14. PREDNISONE. [Suspect]
     Active Substance: PREDNISONE
     Dosage: DATE OF MOST RECENT DOSE OF PREDNISONE PRIOR TO SAE ONSET: 14/DEC/2020
     Route: 048
     Dates: start: 20201123
  15. HEPARIN SODIUM, PORCINE [Concomitant]
     Active Substance: HEPARIN SODIUM
     Route: 042
     Dates: start: 20201028, end: 20201028
  16. HEPARIN SODIUM, PORCINE [Concomitant]
     Active Substance: HEPARIN SODIUM
     Route: 042
     Dates: start: 20201103, end: 20201103
  17. NEULASTA [Concomitant]
     Active Substance: PEGFILGRASTIM
     Route: 058
     Dates: start: 20201102, end: 20201102
  18. ZYLOPRIM [Concomitant]
     Active Substance: ALLOPURINOL
     Route: 048
     Dates: start: 20201102, end: 20201102
  19. IMODIUM [Concomitant]
     Active Substance: LOPERAMIDE HYDROCHLORIDE
  20. DOXORUBICIN [Suspect]
     Active Substance: DOXORUBICIN
     Dosage: ON 14/DEC/2020, PATIENT RECEIVED MOST RECENT DOSE OF 107 MG PRIOR TO SAE ONSET.
     Route: 042
     Dates: start: 20201123
  21. ALOXI [Concomitant]
     Active Substance: PALONOSETRON HYDROCHLORIDE
     Route: 042
     Dates: start: 20201102, end: 20201102
  22. TYLENOL [Concomitant]
     Active Substance: ACETAMINOPHEN
     Route: 042
     Dates: start: 20201103, end: 20201103
  23. CYCLOPHOSPHAMIDE. [Suspect]
     Active Substance: CYCLOPHOSPHAMIDE
     Indication: B-CELL LYMPHOMA
     Dosage: ON 02/NOV/2020, THE PATIENT RECEIVED MOST RECENT DOSE 1643 MG PRIOR TO AE.
     Route: 042
     Dates: start: 20201102
  24. CYCLOPHOSPHAMIDE. [Suspect]
     Active Substance: CYCLOPHOSPHAMIDE
     Dosage: DATE OF MOST RECENT DOSE OF CYCLOPHOSPHAMIDE OF 1605 MG PRIOR TO SAE ONSET: 14/DEC/2020
     Route: 042
     Dates: start: 20201123
  25. EMEND [Concomitant]
     Active Substance: APREPITANT
     Route: 042
     Dates: start: 20201102, end: 20201102

REACTIONS (2)
  - Neutrophil count decreased [Recovered/Resolved]
  - Febrile neutropenia [Not Recovered/Not Resolved]

NARRATIVE: CASE EVENT DATE: 20201109
